FAERS Safety Report 16067968 (Version 4)
Quarter: 2019Q2

REPORT INFORMATION
  Report Type: Spontaneous
  Country: DE (occurrence: DE)
  Receive Date: 20190313
  Receipt Date: 20190412
  Transmission Date: 20190711
  Serious: Yes (Disabling, Other)
  Sender: FDA-Public Use
  Company Number: DE-BRACCO-2019DE01075

PATIENT
  Age: 35 Year
  Sex: Male

DRUGS (6)
  1. DOTAREM [Suspect]
     Active Substance: GADOTERATE MEGLUMINE
     Indication: NUCLEAR MAGNETIC RESONANCE IMAGING
     Dosage: 1 DF (UNKNOWN), SINGLE
     Route: 042
     Dates: start: 20121116, end: 20121116
  2. DOTAREM [Suspect]
     Active Substance: GADOTERATE MEGLUMINE
     Indication: NUCLEAR MAGNETIC RESONANCE IMAGING
     Dosage: 1 DF (UNKNOWN), SINGLE
     Route: 042
     Dates: start: 20120619, end: 20120619
  3. MULTIHANCE [Suspect]
     Active Substance: GADOBENATE DIMEGLUMINE
     Indication: NUCLEAR MAGNETIC RESONANCE IMAGING SPINAL
     Dosage: 10 ML, SINGLE, VIA AUTOMATIC INJECTION
     Route: 042
     Dates: start: 20111010, end: 20111010
  4. DOTAREM [Suspect]
     Active Substance: GADOTERATE MEGLUMINE
     Indication: NUCLEAR MAGNETIC RESONANCE IMAGING
     Dosage: 1 DF (UNKNOWN), SINGLE
     Route: 042
     Dates: start: 20130820, end: 20130820
  5. DOTAREM [Suspect]
     Active Substance: GADOTERATE MEGLUMINE
     Indication: NUCLEAR MAGNETIC RESONANCE IMAGING
     Dosage: 1 DF (UNKNOWN), SINGLE
     Route: 042
     Dates: start: 20120614, end: 20120614
  6. MULTIHANCE [Suspect]
     Active Substance: GADOBENATE DIMEGLUMINE
     Indication: NUCLEAR MAGNETIC RESONANCE IMAGING
     Dosage: 10 ML, SINGLE, VIA AUTOMATIC INJECTION
     Route: 042
     Dates: start: 20130617, end: 20130617

REACTIONS (5)
  - Condition aggravated [Unknown]
  - Cell marker increased [Unknown]
  - Nephrogenic systemic fibrosis [Unknown]
  - Impaired work ability [Unknown]
  - Product residue present [Unknown]

NARRATIVE: CASE EVENT DATE: 201110
